FAERS Safety Report 6307971-7 (Version None)
Quarter: 2009Q3

REPORT INFORMATION
  Report Type: 
  Country: None (occurrence: None)
  Receive Date: 20090810
  Receipt Date: 20090727
  Transmission Date: 20100115
  Serious: Yes (Other)
  Sender: FDA-Public Use
  Company Number: 8049260

PATIENT
  Age: 33 Year
  Sex: Male
  Weight: 77 kg

DRUGS (9)
  1. CIMZIA [Suspect]
     Indication: COLITIS ULCERATIVE
     Dosage: 400 MG  SC
     Route: 058
     Dates: start: 20081112, end: 20090604
  2. CIMZIA [Suspect]
     Indication: CROHN'S DISEASE
     Dosage: 400 MG  SC
     Route: 058
     Dates: start: 20081112, end: 20090604
  3. PREDNISONE [Concomitant]
  4. ASACOL [Concomitant]
  5. SINGULAIR [Concomitant]
  6. ALLEGRA D 24 HOUR [Concomitant]
  7. VITAMINS [Concomitant]
  8. IMURAN [Concomitant]
  9. COUMADIN [Concomitant]

REACTIONS (10)
  - ADENOCARCINOMA [None]
  - CONDITION AGGRAVATED [None]
  - CROHN'S DISEASE [None]
  - HAEMOGLOBIN DECREASED [None]
  - MESENTERIC VEIN THROMBOSIS [None]
  - METASTATIC NEOPLASM [None]
  - PORTAL VEIN THROMBOSIS [None]
  - RECTAL CANCER [None]
  - SPLENIC VEIN THROMBOSIS [None]
  - WEIGHT DECREASED [None]
